FAERS Safety Report 6908064-8 (Version None)
Quarter: 2010Q3

REPORT INFORMATION
  Report Type: 
  Country: None (occurrence: None)
  Receive Date: 20100805
  Receipt Date: 20100727
  Transmission Date: 20110219
  Serious: Yes (Hospitalization)
  Sender: FDA-Public Use
  Company Number: US-ELI_LILLY_AND_COMPANY-US201007006535

PATIENT
  Sex: Male
  Weight: 50.8 kg

DRUGS (2)
  1. OLANZAPINE [Suspect]
     Indication: BIPOLAR I DISORDER
     Dosage: 7.5 MG, DAILY (1/D)
     Route: 048
     Dates: start: 20100720
  2. LITHIUM                            /00033701/ [Concomitant]
     Indication: BIPOLAR DISORDER
     Dosage: 300 MG, 2/D
     Route: 048
     Dates: start: 20100720

REACTIONS (5)
  - AGGRESSION [None]
  - ANGER [None]
  - MOOD SWINGS [None]
  - SUICIDAL IDEATION [None]
  - WEIGHT INCREASED [None]
